FAERS Safety Report 8157724-2 (Version None)
Quarter: 2012Q1

REPORT INFORMATION
  Report Type: 
  Country: None (occurrence: None)
  Receive Date: 20120222
  Receipt Date: 20120215
  Transmission Date: 20120608
  Serious: Yes (Other)
  Sender: FDA-Public Use
  Company Number: US-BAXTER-2012BH004543

PATIENT
  Sex: Male
  Weight: 2 kg

DRUGS (22)
  1. DOPAMINE HCL IN 5% DEXTROSE [Suspect]
     Indication: POSITIVE CARDIAC INOTROPIC EFFECT
     Route: 042
  2. MILRINONE LACTATE IN 5% DEXTROSE INJECTION IN PLASTIC CONTAINER [Suspect]
     Indication: CARDIAC OUTPUT DECREASED
     Route: 042
  3. PHENYTOIN [Interacting]
     Route: 040
  4. CALCIUM GLUCONATE [Concomitant]
     Indication: MINERAL SUPPLEMENTATION
     Route: 042
  5. BREVIBLOC [Suspect]
     Route: 042
  6. BREVIBLOC [Suspect]
     Route: 042
  7. NEXTERONE [Interacting]
     Indication: TORSADE DE POINTES
     Route: 040
  8. NEXTERONE [Interacting]
     Route: 040
  9. MAGNESIUM [Concomitant]
     Indication: MINERAL SUPPLEMENTATION
     Route: 042
  10. BREVIBLOC [Suspect]
     Route: 042
  11. ISOPROTERENOL HCL [Suspect]
     Indication: HEART RATE DECREASED
     Route: 042
  12. LIDOCAINE HCL [Interacting]
     Indication: VENTRICULAR ARRHYTHMIA
     Route: 042
  13. LIDOCAINE HCL [Interacting]
     Route: 042
  14. LIDOCAINE [Suspect]
     Indication: VENTRICULAR ARRHYTHMIA
     Route: 042
  15. ALBUTEIN [Concomitant]
     Indication: POOR PERIPHERAL CIRCULATION
     Route: 042
  16. LIDOCAINE HCL [Interacting]
     Route: 042
  17. VECURONIUM BROMIDE [Concomitant]
     Indication: GENERAL ANAESTHESIA
     Route: 042
  18. POTASSIUM CHLORIDE [Concomitant]
     Indication: MINERAL SUPPLEMENTATION
     Route: 042
  19. BREVIBLOC [Suspect]
     Indication: VENTRICULAR ARRHYTHMIA
     Route: 042
  20. BREVIBLOC [Suspect]
     Route: 042
  21. PHENYTOIN [Interacting]
     Indication: VENTRICULAR TACHYCARDIA
     Route: 040
  22. FENTANYL [Concomitant]
     Indication: GENERAL ANAESTHESIA
     Route: 042

REACTIONS (3)
  - TOXICITY TO VARIOUS AGENTS [None]
  - DRUG INTERACTION [None]
  - NEUROTOXICITY [None]
